FAERS Safety Report 5719607-4 (Version None)
Quarter: 2008Q2

REPORT INFORMATION
  Report Type: 
  Country: None (occurrence: None)
  Receive Date: 20080428
  Receipt Date: 20080418
  Transmission Date: 20081010
  Serious: Yes (Death, Life-Threatening, Hospitalization)
  Sender: FDA-Public Use
  Company Number: B0517297A

PATIENT
  Age: 55 Year
  Sex: Female

DRUGS (4)
  1. AUGMENTIN '125' [Suspect]
     Indication: LUNG INFECTION
     Route: 048
     Dates: start: 20071220, end: 20071225
  2. PARACETAMOL [Suspect]
     Indication: DRUG USE FOR UNKNOWN INDICATION
     Dosage: 2G PER DAY
     Route: 048
     Dates: start: 20071220, end: 20071225
  3. ZECLAR [Suspect]
     Indication: LUNG INFECTION
     Route: 048
     Dates: start: 20071220, end: 20071225
  4. VENTOLIN [Concomitant]
     Indication: LUNG INFECTION
     Route: 065
     Dates: start: 20071220, end: 20071225

REACTIONS (17)
  - BLOOD SODIUM DECREASED [None]
  - BUNDLE BRANCH BLOCK RIGHT [None]
  - CARDIAC ARREST [None]
  - CHOLESTASIS [None]
  - ELECTROCARDIOGRAM ABNORMAL [None]
  - HAEMODYNAMIC INSTABILITY [None]
  - HAEMOGLOBIN DECREASED [None]
  - HEPATIC FAILURE [None]
  - HEPATIC FUNCTION ABNORMAL [None]
  - HEPATITIS FULMINANT [None]
  - HYPOTENSION [None]
  - LIVER INJURY [None]
  - LUNG DISORDER [None]
  - MALNUTRITION [None]
  - PLATELET COUNT DECREASED [None]
  - RESPIRATORY DISTRESS [None]
  - SEPTIC SHOCK [None]
